FAERS Safety Report 20034732 (Version 1)
Quarter: 2021Q4

REPORT INFORMATION
  Report Type: Spontaneous
  Country: US (occurrence: US)
  Receive Date: 20211104
  Receipt Date: 20211104
  Transmission Date: 20220304
  Serious: No
  Sender: FDA-Public Use
  Company Number: US-GW PHARMA-202110USGW05305

PATIENT

DRUGS (1)
  1. EPIDIOLEX [Suspect]
     Active Substance: CANNABIDIOL
     Indication: Lennox-Gastaut syndrome
     Dosage: 15.47 MG/KG/DAY, 200 MILLIGRAM, BID
     Route: 048
     Dates: start: 20211004

REACTIONS (1)
  - Behaviour disorder [Unknown]

NARRATIVE: CASE EVENT DATE: 20211001
